FAERS Safety Report 23713174 (Version 1)
Quarter: 2024Q2

REPORT INFORMATION
  Report Type: Spontaneous
  Country: US (occurrence: None)
  Receive Date: 20240405
  Receipt Date: 20240405
  Transmission Date: 20240716
  Serious: Yes (unspecified)
  Sender: FDA-Public Use
  Company Number: None

PATIENT
  Age: 67 Year
  Sex: Female
  Weight: 57.6 kg

DRUGS (3)
  1. XYLOCAINE [Suspect]
     Active Substance: LIDOCAINE HYDROCHLORIDE
     Indication: Chronic sinusitis
     Dosage: 7 ML ONCE NASAL ?
     Route: 045
     Dates: start: 20240401, end: 20240401
  2. XYLOCAINE [Suspect]
     Active Substance: LIDOCAINE HYDROCHLORIDE
     Indication: Nasal congestion
  3. Xylocaine with epinepherine [Concomitant]
     Dates: start: 20240401, end: 20240401

REACTIONS (2)
  - Tachycardia [None]
  - Hypertension [None]

NARRATIVE: CASE EVENT DATE: 20240401
